FAERS Safety Report 4987788-6 (Version None)
Quarter: 2006Q2

REPORT INFORMATION
  Report Type: 
  Country: None (occurrence: None)
  Receive Date: 20060426
  Receipt Date: 20060407
  Transmission Date: 20061013
  Serious: Yes (Death)
  Sender: FDA-Public Use
  Company Number: IN200604001374

PATIENT
  Age: 55 Year
  Sex: Male

DRUGS (2)
  1. GEMCITABINE HYDROCHLORIDE [Suspect]
     Indication: LUNG NEOPLASM MALIGNANT
     Dosage: INTRAVENOUS
     Route: 042
  2. CARBOPLATIN [Concomitant]

REACTIONS (3)
  - FALL [None]
  - MYOCARDIAL INFARCTION [None]
  - SUDDEN DEATH [None]
